FAERS Safety Report 6145732-2 (Version None)
Quarter: 2009Q2

REPORT INFORMATION
  Report Type: 
  Country: None (occurrence: None)
  Receive Date: 20090407
  Receipt Date: 20090330
  Transmission Date: 20091009
  Serious: Yes (Hospitalization, Other)
  Sender: FDA-Public Use
  Company Number: BR-ELI_LILLY_AND_COMPANY-BR200903007719

PATIENT
  Sex: Female
  Weight: 100 kg

DRUGS (8)
  1. BYETTA [Suspect]
     Indication: TYPE 2 DIABETES MELLITUS
     Dosage: UNK, 2/D
     Route: 058
     Dates: start: 20090321
  2. RIVOTRIL [Concomitant]
     Indication: INSOMNIA
     Dosage: 2 MG, EACH EVENING
     Route: 065
  3. FLUOXETINE [Concomitant]
     Indication: DEPRESSION
     Dosage: 40 MG, DAILY (1/D)
     Route: 065
  4. DIOVAN [Concomitant]
     Indication: HYPERTENSION
     Dosage: UNK, DAILY (1/D)
     Route: 065
  5. OMEPRAZOL [Concomitant]
     Indication: GASTRITIS
     Dosage: 200 MG, DAILY (1/D)
     Route: 065
  6. DIAMICRON [Concomitant]
     Indication: DIABETES MELLITUS
     Dosage: 30 MG, DAILY (1/D)
     Route: 065
  7. GLIFAGE [Concomitant]
     Indication: DIABETES MELLITUS
     Dosage: 850 MG, 4/D
     Route: 065
  8. ATENOLOL [Concomitant]
     Indication: TACHYCARDIA
     Dosage: UNK, UNKNOWN
     Route: 065

REACTIONS (9)
  - ASTHENIA [None]
  - BLOOD GLUCOSE ABNORMAL [None]
  - COMA [None]
  - DEHYDRATION [None]
  - DYSPEPSIA [None]
  - HYPERSENSITIVITY [None]
  - NAUSEA [None]
  - RETCHING [None]
  - TREMOR [None]
